FAERS Safety Report 7129133-6 (Version None)
Quarter: 2010Q4

REPORT INFORMATION
  Report Type: 
  Country: None (occurrence: None)
  Receive Date: 20101130
  Receipt Date: 20101124
  Transmission Date: 20110411
  Serious: Yes (Other)
  Sender: FDA-Public Use
  Company Number: CHPA2010US13136

PATIENT
  Age: 41 Year
  Sex: Female
  Weight: 56.689 kg

DRUGS (1)
  1. PREVACID 24 HR [Suspect]
     Indication: GASTRITIS
     Dosage: 15 MG, BID
     Route: 048
     Dates: start: 20100801, end: 20100801

REACTIONS (7)
  - DYSPNOEA [None]
  - HYPERSENSITIVITY [None]
  - OFF LABEL USE [None]
  - OVERDOSE [None]
  - RASH GENERALISED [None]
  - THROAT TIGHTNESS [None]
  - WRONG TECHNIQUE IN DRUG USAGE PROCESS [None]
